FAERS Safety Report 9053870 (Version 2)
Quarter: 2013Q1

REPORT INFORMATION
  Report Type: Spontaneous
  Country: JP (occurrence: JP)
  Receive Date: 20130206
  Receipt Date: 20130227
  Transmission Date: 20140127
  Serious: Yes (Hospitalization)
  Sender: FDA-Public Use
  Company Number: JP-ABBOTT-12P-087-1027098-00

PATIENT
  Age: 38 Year
  Sex: Female

DRUGS (9)
  1. LUVOX [Suspect]
     Indication: DEPRESSION
     Route: 048
  2. LUVOX [Suspect]
     Indication: PANIC DISORDER
  3. MEILAX [Suspect]
     Indication: DEPRESSION
     Route: 048
  4. MEILAX [Suspect]
     Indication: PANIC DISORDER
  5. HALCION [Suspect]
     Indication: DEPRESSION
     Route: 048
  6. HALCION [Suspect]
     Indication: PANIC DISORDER
  7. CETIRIZINE HYDROCHLORIDE [Concomitant]
     Indication: PRODUCT USED FOR UNKNOWN INDICATION
     Route: 048
     Dates: start: 20120423, end: 20120507
  8. MAGNESIUM OXIDE [Concomitant]
     Indication: CONSTIPATION
     Route: 048
     Dates: start: 20120822, end: 20121017
  9. SODIUM PICOSULFATE [Concomitant]
     Indication: CONSTIPATION
     Route: 048
     Dates: start: 20120822, end: 20121017

REACTIONS (1)
  - Threatened labour [Unknown]
